FAERS Safety Report 23485390 (Version 1)
Quarter: 2024Q1

REPORT INFORMATION
  Report Type: Spontaneous
  Country: US (occurrence: US)
  Receive Date: 20240206
  Receipt Date: 20240206
  Transmission Date: 20240410
  Serious: No
  Sender: FDA-Public Use
  Company Number: US-SA-SAC20240130000391

PATIENT
  Age: 56 Year
  Sex: Female

DRUGS (7)
  1. DUPIXENT [Suspect]
     Active Substance: DUPILUMAB
     Indication: Asthma
     Dosage: 1 DF, QOW
     Route: 058
     Dates: start: 20231227
  2. SYMBICORT [Concomitant]
     Active Substance: BUDESONIDE\FORMOTEROL FUMARATE DIHYDRATE
  3. MONTELUKAST [Concomitant]
     Active Substance: MONTELUKAST SODIUM
  4. ESTRADIOL [Concomitant]
     Active Substance: ESTRADIOL
  5. IPRATROPIUM [Concomitant]
     Active Substance: IPRATROPIUM
  6. ALBUTEROL [Concomitant]
     Active Substance: ALBUTEROL
  7. FLUTICASONE [Concomitant]
     Active Substance: FLUTICASONE

REACTIONS (2)
  - Sinusitis [Unknown]
  - Urticaria [Unknown]

NARRATIVE: CASE EVENT DATE: 20240125
